FAERS Safety Report 9433235 (Version 2)
Quarter: 2013Q4

REPORT INFORMATION
  Report Type: Report from Study
  Country: JP (occurrence: JP)
  Receive Date: 20130731
  Receipt Date: 20131125
  Transmission Date: 20140711
  Serious: Yes (Death)
  Sender: FDA-Public Use
  Company Number: JP-GLAXOSMITHKLINE-B0906134A

PATIENT
  Age: 76 Year
  Sex: Male
  Weight: 60 kg

DRUGS (2)
  1. VOTRIENT 200MG [Suspect]
     Indication: HEPATOCELLULAR CARCINOMA
     Dosage: 400MG PER DAY
     Route: 048
     Dates: start: 20130401, end: 20130625
  2. GASTER D [Concomitant]
     Indication: GASTRIC ULCER
     Route: 048

REACTIONS (3)
  - Gastrointestinal perforation [Fatal]
  - Anaemia [Not Recovered/Not Resolved]
  - Oedema [Not Recovered/Not Resolved]
